FAERS Safety Report 17043819 (Version 2)
Quarter: 2019Q4

REPORT INFORMATION
  Report Type: Spontaneous
  Country: US (occurrence: US)
  Receive Date: 20191118
  Receipt Date: 20191125
  Transmission Date: 20200122
  Serious: Yes (Other)
  Sender: FDA-Public Use
  Company Number: US-PFIZER INC-2019497663

PATIENT
  Age: 69 Year
  Sex: Female
  Weight: 77.11 kg

DRUGS (1)
  1. CHANTIX [Suspect]
     Active Substance: VARENICLINE TARTRATE
     Indication: SMOKING CESSATION THERAPY
     Dosage: ONE TABLET ONCE A DAY
     Route: 048
     Dates: start: 2019

REACTIONS (3)
  - Breast mass [Unknown]
  - Breast cancer [Unknown]
  - Cough [Unknown]

NARRATIVE: CASE EVENT DATE: 201910
